FAERS Safety Report 10206079 (Version 1)
Quarter: 2014Q2

REPORT INFORMATION
  Report Type: Spontaneous
  Country: DE (occurrence: DE)
  Receive Date: 20140530
  Receipt Date: 20140530
  Transmission Date: 20141212
  Serious: Yes (Other)
  Sender: FDA-Public Use
  Company Number: DE-AMGEN INC.-DEUSP2014039211

PATIENT
  Age: 31 Year
  Sex: Female

DRUGS (4)
  1. NEULASTA [Suspect]
     Indication: BREAST CANCER
     Dosage: 6 MG, UNK
     Route: 065
     Dates: start: 201405
  2. EPIRUBICIN [Concomitant]
     Indication: BREAST CANCER
     Dosage: UNK
  3. PACLITAXEL [Concomitant]
     Indication: BREAST CANCER
     Dosage: UNK
  4. CYCLOPHOSPHAMIDE [Concomitant]
     Indication: BREAST CANCER
     Dosage: UNK

REACTIONS (2)
  - Neutropenia [Unknown]
  - Drug ineffective [Unknown]
